FAERS Safety Report 10578577 (Version 5)
Quarter: 2015Q1

REPORT INFORMATION
  Report Type: Spontaneous
  Country: IT (occurrence: IT)
  Receive Date: 20141112
  Receipt Date: 20150202
  Transmission Date: 20150720
  Serious: Yes (Death, Life-Threatening, Hospitalization, Other)
  Sender: FDA-Public Use
  Company Number: IT-ELI_LILLY_AND_COMPANY-IT201411002828

PATIENT
  Age: 70 Year
  Sex: Female
  Weight: 65 kg

DRUGS (10)
  1. ACETYLSALICYLIC ACID [Concomitant]
     Active Substance: ASPIRIN
     Indication: ACUTE MYOCARDIAL INFARCTION
     Dosage: 300 MG, UNKNOWN
     Route: 065
     Dates: start: 20141030, end: 20141030
  2. TORVAST [Concomitant]
     Active Substance: ATORVASTATIN
     Indication: PRODUCT USED FOR UNKNOWN INDICATION
     Dosage: 80 MG, UNKNOWN
     Route: 048
     Dates: start: 20141030, end: 20141030
  3. HEPARIN [Concomitant]
     Active Substance: HEPARIN SODIUM
     Indication: ACUTE MYOCARDIAL INFARCTION
     Dosage: 5000 IU, UNKNOWN
     Route: 065
     Dates: start: 20141030
  4. ASCRIPTIN [Concomitant]
     Active Substance: ASPIRIN
     Indication: PRODUCT USED FOR UNKNOWN INDICATION
     Dosage: 300 MG, UNKNOWN
     Route: 065
  5. REOPRO [Suspect]
     Active Substance: ABCIXIMAB
     Indication: THROMBOSIS
  6. PANTORC [Concomitant]
     Active Substance: PANTOPRAZOLE SODIUM
     Indication: PRODUCT USED FOR UNKNOWN INDICATION
     Dosage: 40 MG, UNKNOWN
     Route: 042
  7. HEPARIN [Concomitant]
     Active Substance: HEPARIN SODIUM
     Dosage: 300 IU, UNKNOWN
     Route: 065
  8. REOPRO [Suspect]
     Active Substance: ABCIXIMAB
     Indication: MYOCARDIAL INFARCTION
     Dosage: 25 MG/KG, SINGLE
     Route: 042
     Dates: start: 20141030, end: 20141030
  9. MORPHINE [Concomitant]
     Active Substance: MORPHINE
     Indication: PRODUCT USED FOR UNKNOWN INDICATION
     Dosage: 4 MG, UNK
     Route: 065
  10. EFIENT [Suspect]
     Active Substance: PRASUGREL HYDROCHLORIDE
     Indication: ACUTE MYOCARDIAL INFARCTION
     Dosage: 60 MG, SINGLE
     Route: 048
     Dates: start: 20141030, end: 20141030

REACTIONS (5)
  - Aneurysm [Unknown]
  - Coronary artery thrombosis [Unknown]
  - Haemorrhage intracranial [Fatal]
  - Myocardial infarction [Unknown]
  - Coma [Unknown]

NARRATIVE: CASE EVENT DATE: 20141030
